FAERS Safety Report 9178855 (Version 1)
Quarter: 2012Q4

REPORT INFORMATION
  Report Type: 
  Country: US (occurrence: US)
  Receive Date: 20121029
  Receipt Date: 20121029
  Transmission Date: 20130627
  Serious: Yes (Hospitalization)
  Sender: FDA-Public Use
  Company Number: US-AMGEN-USASP2012053573

PATIENT
  Age: 59 Year
  Sex: Female

DRUGS (1)
  1. ENBREL [Suspect]
     Indication: PSORIASIS
     Dosage: UNK
     Dates: start: 20090101, end: 201202

REACTIONS (3)
  - Arthritis bacterial [Recovered/Resolved]
  - Sunburn [Not Recovered/Not Resolved]
  - Psoriasis [Not Recovered/Not Resolved]
